FAERS Safety Report 17785763 (Version 2)
Quarter: 2020Q2

REPORT INFORMATION
  Report Type: Spontaneous
  Country: AU (occurrence: AU)
  Receive Date: 20200514
  Receipt Date: 20200515
  Transmission Date: 20200714
  Serious: Yes (Other)
  Sender: FDA-Public Use
  Company Number: AU-FRESENIUS KABI-FK202004664

PATIENT
  Age: 75 Year
  Sex: Female

DRUGS (2)
  1. ROPIVACAINE (MANUFACTURER UNKNOWN) [Suspect]
     Active Substance: ROPIVACAINE
     Indication: NERVE BLOCK
     Dosage: SUB- TENON`S
     Route: 065
  2. CEFAZOLIN [Suspect]
     Active Substance: CEFAZOLIN
     Indication: EYE DISORDER PROPHYLAXIS
     Dosage: 0.1ML (2.5MG) PATCH

REACTIONS (2)
  - Blindness [Unknown]
  - Retinopathy [Unknown]
